FAERS Safety Report 15425364 (Version 1)
Quarter: 2018Q3

REPORT INFORMATION
  Report Type: Report from Study
  Country: US (occurrence: US)
  Receive Date: 20180925
  Receipt Date: 20180925
  Transmission Date: 20181010
  Serious: Yes (Hospitalization, Other)
  Sender: FDA-Public Use
  Company Number: US-GILEAD-2018-0364718

PATIENT
  Age: 69 Year
  Sex: Female

DRUGS (16)
  1. PREDNISONE. [Concomitant]
     Active Substance: PREDNISONE
  2. VITAMIN C [Concomitant]
     Active Substance: ASCORBIC ACID
  3. VITAMIN D3 [Concomitant]
     Active Substance: CHOLECALCIFEROL
  4. AMBRISENTAN [Suspect]
     Active Substance: AMBRISENTAN
     Indication: PULMONARY ARTERIAL HYPERTENSION
     Dosage: 10 MG, QD
     Route: 065
     Dates: start: 20160525
  5. SINGULAIR [Concomitant]
     Active Substance: MONTELUKAST SODIUM
  6. IBUPROFEN. [Concomitant]
     Active Substance: IBUPROFEN
  7. LIPITOR [Concomitant]
     Active Substance: ATORVASTATIN CALCIUM
  8. PLAQUENIL                          /00072602/ [Concomitant]
     Active Substance: HYDROXYCHLOROQUINE DIPHOSPHATE
  9. PLAVIX [Concomitant]
     Active Substance: CLOPIDOGREL BISULFATE
  10. TYLENOL [Concomitant]
     Active Substance: ACETAMINOPHEN
  11. ADCIRCA [Concomitant]
     Active Substance: TADALAFIL
  12. BONIVA [Concomitant]
     Active Substance: IBANDRONATE SODIUM
  13. COUMADIN [Concomitant]
     Active Substance: WARFARIN SODIUM
  14. ASPIRIN                            /00002701/ [Concomitant]
     Active Substance: ASPIRIN
  15. LASIX [Concomitant]
     Active Substance: FUROSEMIDE
  16. VENTAVIS [Concomitant]
     Active Substance: ILOPROST

REACTIONS (1)
  - Pneumonia [Not Recovered/Not Resolved]
